FAERS Safety Report 8806138 (Version 1)
Quarter: 2012Q4

REPORT INFORMATION
  Report Type: Spontaneous
  Country: ES (occurrence: None)
  Receive Date: 20120918
  Receipt Date: 20120918
  Transmission Date: 20130627
  Serious: Yes (Hospitalization)
  Sender: FDA-Public Use
  Company Number: JPI-P-025159

PATIENT
  Age: 62 Year
  Sex: Male

DRUGS (3)
  1. XYREM (500 MILLIGRAM/MILLILITERS, SOLUTION)(SODIUM OXYBATE) [Suspect]
     Indication: CATAPLEXY
     Dosage: (4.5 GM, 2 IN 1 D)
     Route: 048
     Dates: start: 20120327
  2. MODAFINIL [Concomitant]
  3. FLUOXETINE [Concomitant]

REACTIONS (1)
  - Biliary colic [None]
